FAERS Safety Report 7337287-1 (Version None)
Quarter: 2011Q1

REPORT INFORMATION
  Report Type: 
  Country: None (occurrence: None)
  Receive Date: 20110222
  Receipt Date: 20110210
  Transmission Date: 20110831
  Serious: Yes (Disabling)
  Sender: FDA-Public Use
  Company Number: 2011MA001463

PATIENT
  Age: 59 Year
  Sex: Female

DRUGS (1)
  1. MIRTAZAPINE [Suspect]
     Indication: PRODUCT USED FOR UNKNOWN INDICATION
     Dosage: ; PO
     Route: 048
     Dates: end: 20100401

REACTIONS (5)
  - BURNING SENSATION [None]
  - WEIGHT INCREASED [None]
  - WITHDRAWAL SYNDROME [None]
  - PARAESTHESIA [None]
  - HEART RATE INCREASED [None]
